FAERS Safety Report 21983779 (Version 1)
Quarter: 2023Q1

REPORT INFORMATION
  Report Type: Spontaneous
  Country: US (occurrence: None)
  Receive Date: 20230210
  Receipt Date: 20230210
  Transmission Date: 20230418
  Serious: Yes (Other)
  Sender: FDA-Public Use
  Company Number: None

PATIENT

DRUGS (1)
  1. THERATEARS LUBRICANT [Suspect]
     Active Substance: CARBOXYMETHYLCELLULOSE SODIUM
     Dosage: OTHER QUANTITY : 1 OUNCE;?

REACTIONS (7)
  - Product contamination microbial [None]
  - Dry eye [None]
  - Eye pain [None]
  - Eye inflammation [None]
  - Haemorrhage [None]
  - Visual impairment [None]
  - Eye colour change [None]
